FAERS Safety Report 6434450-9 (Version None)
Quarter: 2009Q4

REPORT INFORMATION
  Report Type: 
  Country: None (occurrence: None)
  Receive Date: 20091110
  Receipt Date: 20091029
  Transmission Date: 20100525
  Serious: Yes (Other)
  Sender: FDA-Public Use
  Company Number: BE-PFIZER INC-2009269568

PATIENT
  Age: 45 Year
  Sex: Female

DRUGS (1)
  1. ZYVOXID [Suspect]

REACTIONS (1)
  - OTOTOXICITY [None]
